FAERS Safety Report 10099539 (Version 2)
Quarter: 2014Q2

REPORT INFORMATION
  Report Type: Report from Study
  Country: US (occurrence: US)
  Receive Date: 20140423
  Receipt Date: 20140423
  Transmission Date: 20141212
  Serious: Yes (Hospitalization)
  Sender: FDA-Public Use
  Company Number: US-ACTELION-A-US2008-19166

PATIENT
  Age: 56 Year
  Sex: Female

DRUGS (3)
  1. TRACLEER [Suspect]
     Indication: PULMONARY ARTERIAL HYPERTENSION
     Dosage: UNK
     Route: 048
     Dates: start: 20030325
  2. RIOCIGUAT [Concomitant]
  3. COUMADIN [Concomitant]

REACTIONS (7)
  - Gallbladder disorder [Unknown]
  - Abdominal pain upper [Unknown]
  - Vomiting [Unknown]
  - Dehydration [Unknown]
  - Cholelithiasis [Unknown]
  - Pruritus [Unknown]
  - Gravitational oedema [Unknown]
